FAERS Safety Report 5367305-1 (Version None)
Quarter: 2007Q2

REPORT INFORMATION
  Report Type: 
  Country: None (occurrence: None)
  Receive Date: 20070622
  Receipt Date: 20060512
  Transmission Date: 20071010
  Serious: No
  Sender: FDA-Public Use
  Company Number: US-ASTRAZENECA-2006UW09449

PATIENT
  Age: 18 Month
  Sex: Male
  Weight: 13.6 kg

DRUGS (6)
  1. PULMICORT RESPULES [Suspect]
     Indication: ASTHMA
     Route: 055
  2. ANDEHIST [Concomitant]
  3. XOPENEX [Concomitant]
  4. ORAPRED [Concomitant]
  5. CORTISONE ACETATE [Concomitant]
  6. ZITHROMAX [Concomitant]

REACTIONS (2)
  - PSYCHOMOTOR HYPERACTIVITY [None]
  - VOMITING [None]
